FAERS Safety Report 7252285-4 (Version None)
Quarter: 2011Q1

REPORT INFORMATION
  Report Type: 
  Country: None (occurrence: None)
  Receive Date: 20110129
  Receipt Date: 20100112
  Transmission Date: 20110831
  Serious: Yes (Hospitalization)
  Sender: FDA-Public Use
  Company Number: US-ABBOTT-10P-163-0618695-00

PATIENT
  Sex: Female
  Weight: 81.72 kg

DRUGS (5)
  1. LEFLUNOMIDE [Concomitant]
     Indication: PRODUCT USED FOR UNKNOWN INDICATION
     Route: 048
  2. METHOTREXATE [Concomitant]
     Indication: PRODUCT USED FOR UNKNOWN INDICATION
     Route: 048
  3. FOLIC ACID [Concomitant]
     Indication: PRODUCT USED FOR UNKNOWN INDICATION
     Route: 048
  4. HUMIRA [Suspect]
     Indication: RHEUMATOID ARTHRITIS
     Route: 058
     Dates: start: 20090701, end: 20091001
  5. HUMIRA [Suspect]

REACTIONS (5)
  - KNEE ARTHROPLASTY [None]
  - INJECTION SITE HAEMATOMA [None]
  - TOOTH FRACTURE [None]
  - INJECTION SITE SWELLING [None]
  - TOOTH EXTRACTION [None]
